FAERS Safety Report 15147158 (Version 1)
Quarter: 2018Q3

REPORT INFORMATION
  Report Type: Spontaneous
  Country: US (occurrence: US)
  Receive Date: 20180716
  Receipt Date: 20180716
  Transmission Date: 20181010
  Serious: No
  Sender: FDA-Public Use
  Company Number: US-009507513-1807USA000216

PATIENT
  Age: 55 Year
  Sex: Female
  Weight: 165 kg

DRUGS (3)
  1. SUCCINYLCHOLINE CHLORIDE. [Concomitant]
     Active Substance: SUCCINYLCHOLINE CHLORIDE
     Indication: GENERAL ANAESTHESIA
  2. PROPOFOL. [Concomitant]
     Active Substance: PROPOFOL
     Indication: GENERAL ANAESTHESIA
  3. PROVENTIL [Suspect]
     Active Substance: ALBUTEROL
     Indication: AIRWAY COMPLICATION OF ANAESTHESIA

REACTIONS (1)
  - Off label use [Unknown]
